FAERS Safety Report 26178253 (Version 1)
Quarter: 2025Q4

REPORT INFORMATION
  Report Type: Spontaneous
  Country: CN (occurrence: CN)
  Receive Date: 20251219
  Receipt Date: 20251219
  Transmission Date: 20260118
  Serious: Yes (Death, Other)
  Sender: ALKEM
  Company Number: CN-ALKEM LABORATORIES LIMITED-CN-ALKEM-2025-13544

PATIENT
  Age: 68 Year
  Sex: Male

DRUGS (7)
  1. ISONIAZID [Suspect]
     Active Substance: ISONIAZID
     Indication: Tuberculosis
     Dosage: 600 MILLIGRAM, QD (HIGH-DOSE) (INTENSIVE PHASE)
     Route: 065
  2. MOXIFLOXACIN [Suspect]
     Active Substance: MOXIFLOXACIN
     Indication: Tuberculosis
     Dosage: 400 MILLIGRAM, QD (INTENSIVE AND CONTINUATION PHASE)
     Route: 065
  3. AMIKACIN [Suspect]
     Active Substance: AMIKACIN
     Indication: Tuberculosis
     Dosage: 600 MILLIGRAM, QD (INTENSIVE PHASE)
     Route: 065
  4. CLOFAZIMINE [Suspect]
     Active Substance: CLOFAZIMINE
     Indication: Tuberculosis
     Dosage: 100 MILLIGRAM, QD (INTENSIVE AND CONTINUATION PHASE)
     Route: 065
  5. ETHAMBUTOL [Suspect]
     Active Substance: ETHAMBUTOL HYDROCHLORIDE
     Indication: Tuberculosis
     Dosage: UNK (INTENSIVE AND CONTINUATION PHASE)
     Route: 065
  6. PROTIONAMIDE [Suspect]
     Active Substance: PROTIONAMIDE
     Indication: Tuberculosis
     Dosage: UNK (INTENSIVE PHASE)
     Route: 065
  7. PYRAZINAMIDE [Suspect]
     Active Substance: PYRAZINAMIDE
     Indication: Tuberculosis
     Dosage: 1500 MILLIGRAM, QD (INTENSIVE AND CONTINUATION PHASE)
     Route: 065

REACTIONS (3)
  - Ventricular fibrillation [Fatal]
  - Cardiac arrest [Fatal]
  - Electrocardiogram QT prolonged [Fatal]
